FAERS Safety Report 20648125 (Version 4)
Quarter: 2023Q2

REPORT INFORMATION
  Report Type: Report from Study
  Country: CA (occurrence: None)
  Receive Date: 20220329
  Receipt Date: 20230619
  Transmission Date: 20230721
  Serious: Yes (Other)
  Sender: FDA-Public Use
  Company Number: CA-Orion Corporation ORION PHARMA-TREX2022-0058

PATIENT
  Age: 71 Year
  Sex: Male

DRUGS (23)
  1. METHOTREXATE [Suspect]
     Active Substance: METHOTREXATE
     Indication: Product used for unknown indication
  2. METHOTREXATE [Suspect]
     Active Substance: METHOTREXATE
  3. METHOTREXATE [Suspect]
     Active Substance: METHOTREXATE
  4. METHOTREXATE [Suspect]
     Active Substance: METHOTREXATE
  5. METHOTREXATE [Suspect]
     Active Substance: METHOTREXATE
  6. METHOTREXATE [Suspect]
     Active Substance: METHOTREXATE
  7. ETANERCEPT [Suspect]
     Active Substance: ETANERCEPT
     Indication: Psoriatic arthropathy
  8. ETANERCEPT [Suspect]
     Active Substance: ETANERCEPT
  9. ETANERCEPT [Suspect]
     Active Substance: ETANERCEPT
  10. COSENTYX [Suspect]
     Active Substance: SECUKINUMAB
     Indication: Psoriatic arthropathy
  11. COSENTYX [Suspect]
     Active Substance: SECUKINUMAB
  12. COSENTYX [Suspect]
     Active Substance: SECUKINUMAB
  13. ERELZI [Suspect]
     Active Substance: ETANERCEPT-SZZS
     Indication: Psoriatic arthropathy
  14. ERELZI [Suspect]
     Active Substance: ETANERCEPT-SZZS
  15. ERELZI [Suspect]
     Active Substance: ETANERCEPT-SZZS
  16. ERELZI [Suspect]
     Active Substance: ETANERCEPT-SZZS
  17. ERELZI [Suspect]
     Active Substance: ETANERCEPT-SZZS
  18. HYDROCHLOROTHIAZIDE [Concomitant]
     Active Substance: HYDROCHLOROTHIAZIDE
  19. HYDROXYCHLOROQUINE [Concomitant]
     Active Substance: HYDROXYCHLOROQUINE
  20. RAMIPRIL [Concomitant]
     Active Substance: RAMIPRIL
  21. SULFASALAZINE [Concomitant]
     Active Substance: SULFASALAZINE
  22. ENBREL [Concomitant]
     Active Substance: ETANERCEPT
  23. ENBREL [Concomitant]
     Active Substance: ETANERCEPT

REACTIONS (6)
  - Drug ineffective [Recovered/Resolved]
  - Neck mass [Recovered/Resolved]
  - C-reactive protein increased [Recovered/Resolved]
  - Lymphoma [Recovered/Resolved]
  - Ill-defined disorder [Recovered/Resolved]
  - Swelling [Recovered/Resolved]
